FAERS Safety Report 18604342 (Version 3)
Quarter: 2020Q4

REPORT INFORMATION
  Report Type: Spontaneous
  Country: US (occurrence: US)
  Receive Date: 20201211
  Receipt Date: 20201223
  Transmission Date: 20210114
  Serious: Yes (Other)
  Sender: FDA-Public Use
  Company Number: US-AUROBINDO-AUR-APL-2020-059499

PATIENT
  Age: 57 Year
  Sex: Female
  Weight: 45.35 kg

DRUGS (4)
  1. TERBINAFINE HYDROCHLORIDE TABLETS 250MG [Suspect]
     Active Substance: TERBINAFINE HYDROCHLORIDE
     Indication: TINEA PEDIS
     Dosage: 1 DOSAGE FORM, ONCE A DAY (ONE TABLET PER DAY)
     Route: 048
     Dates: start: 202011
  2. TERBINAFINE HYDROCHLORIDE TABLETS 250MG [Suspect]
     Active Substance: TERBINAFINE HYDROCHLORIDE
     Dosage: 250MG OR 350MG BU MOUTH ONCE A DAY
     Route: 048
     Dates: start: 20201113, end: 20201120
  3. LOTRIMIN [Concomitant]
     Active Substance: CLOTRIMAZOLE
     Indication: PRODUCT USED FOR UNKNOWN INDICATION
     Dosage: UNK
     Route: 065
  4. TERBINAFINE HYDROCHLORIDE TABLETS 250MG [Suspect]
     Active Substance: TERBINAFINE HYDROCHLORIDE
     Dosage: 250MG OR 350MG  BY MOUTH ONCE A DAY
     Route: 048
     Dates: start: 20201121

REACTIONS (7)
  - Constipation [Recovered/Resolved]
  - Coeliac disease [Recovered/Resolved]
  - Adverse drug reaction [Recovered/Resolved]
  - Abdominal distension [Recovered/Resolved]
  - Diarrhoea [Recovered/Resolved]
  - Feeling abnormal [Recovered/Resolved]
  - Dizziness [Recovered/Resolved]

NARRATIVE: CASE EVENT DATE: 202011
